FAERS Safety Report 6016452-X (Version None)
Quarter: 2008Q4

REPORT INFORMATION
  Report Type: 
  Country: None (occurrence: None)
  Receive Date: 20081222
  Receipt Date: 20081210
  Transmission Date: 20090506
  Serious: Yes (Hospitalization)
  Sender: FDA-Public Use
  Company Number: BR-ELI_LILLY_AND_COMPANY-BR200812002800

PATIENT
  Age: 55 Year
  Sex: Male

DRUGS (6)
  1. FORTEO [Suspect]
     Indication: BACK DISORDER
     Dosage: UNK, DAILY (1/D)
     Route: 058
     Dates: start: 20081001, end: 20081019
  2. FORTEO [Suspect]
     Dosage: UNK, DAILY (1/D)
     Route: 058
  3. SERETIDE [Concomitant]
     Dosage: UNK, 2/D
     Route: 055
  4. SPIRIVA [Concomitant]
     Dosage: UNK, DAILY (1/D)
     Route: 065
  5. DUOVENT [Concomitant]
     Dosage: 0.1 MG, 2/D
     Route: 055
  6. METICORTEN [Concomitant]
     Dosage: 20 MG, DAILY (1/D)
     Route: 048

REACTIONS (1)
  - SILICOSIS [None]
